FAERS Safety Report 20006149 (Version 1)
Quarter: 2021Q4

REPORT INFORMATION
  Report Type: Spontaneous
  Country: US (occurrence: US)
  Receive Date: 20211028
  Receipt Date: 20211028
  Transmission Date: 20220303
  Serious: Yes (Hospitalization, Other)
  Sender: FDA-Public Use
  Company Number: US-IPCA LABORATORIES LIMITED-IPC-2021-US-001819

PATIENT

DRUGS (1)
  1. HYDROXYCHLOROQUINE [Suspect]
     Active Substance: HYDROXYCHLOROQUINE
     Indication: Product used for unknown indication
     Dosage: 27 GRAM
     Route: 048

REACTIONS (9)
  - Toxicity to various agents [Unknown]
  - Conduction disorder [Unknown]
  - Electrocardiogram QT prolonged [Unknown]
  - Hyperkalaemia [Recovering/Resolving]
  - Hypokalaemia [Recovering/Resolving]
  - Shock [Unknown]
  - Electrolyte imbalance [Recovering/Resolving]
  - Overdose [Unknown]
  - Suicide attempt [Unknown]
